FAERS Safety Report 15063693 (Version 1)
Quarter: 2018Q2

REPORT INFORMATION
  Report Type: Report from Study
  Country: US (occurrence: US)
  Receive Date: 20180625
  Receipt Date: 20180625
  Transmission Date: 20180711
  Serious: No
  Sender: FDA-Public Use
  Company Number: US-AMGEN-USASL2016056608

PATIENT
  Age: 69 Year
  Sex: Female

DRUGS (1)
  1. REPATHA [Suspect]
     Active Substance: EVOLOCUMAB
     Indication: PRODUCT USED FOR UNKNOWN INDICATION
     Dosage: UNK
     Route: 065

REACTIONS (12)
  - Fatigue [Unknown]
  - Headache [Unknown]
  - Nasopharyngitis [Unknown]
  - Influenza like illness [Unknown]
  - Diarrhoea [Unknown]
  - Back pain [Unknown]
  - Oropharyngeal pain [Unknown]
  - Arthralgia [Unknown]
  - Pyrexia [Unknown]
  - Hyperhidrosis [Unknown]
  - Myalgia [Unknown]
  - Rhinorrhoea [Unknown]
